FAERS Safety Report 25460485 (Version 3)
Quarter: 2025Q3

REPORT INFORMATION
  Report Type: Spontaneous
  Country: US (occurrence: US)
  Receive Date: 20250620
  Receipt Date: 20250901
  Transmission Date: 20251021
  Serious: Yes (Other)
  Sender: SANOFI AVENTIS
  Company Number: US-SA-2025SA175348

PATIENT
  Age: 61 Year
  Sex: Female

DRUGS (2)
  1. DUPIXENT [Suspect]
     Active Substance: DUPILUMAB
     Indication: Chronic obstructive pulmonary disease
     Route: 058
     Dates: start: 20250509, end: 20250509
  2. HUMIRA [Concomitant]
     Active Substance: ADALIMUMAB

REACTIONS (9)
  - Liver injury [Unknown]
  - Hepatic enzyme increased [Unknown]
  - Bone pain [Recovered/Resolved]
  - Contusion [Recovered/Resolved]
  - Rash macular [Unknown]
  - Hepatitis C antibody positive [Unknown]
  - Vitamin D deficiency [Unknown]
  - Rash pruritic [Unknown]
  - Hepatic steatosis [Unknown]

NARRATIVE: CASE EVENT DATE: 20250101
